FAERS Safety Report 6683974-8 (Version None)
Quarter: 2010Q2

REPORT INFORMATION
  Report Type: 
  Country: None (occurrence: None)
  Receive Date: 20100416
  Receipt Date: 20100402
  Transmission Date: 20101027
  Serious: Yes (Hospitalization)
  Sender: FDA-Public Use
  Company Number: US-ELI_LILLY_AND_COMPANY-US201004001271

PATIENT
  Sex: Female

DRUGS (7)
  1. FORTEO [Suspect]
     Indication: OSTEOPOROSIS
     Dosage: 20 UG, DAILY (1/D)
     Dates: start: 20100301, end: 20100301
  2. ADVAIR DISKUS 100/50 [Concomitant]
     Dosage: 1 D/F, 2/D
  3. ESTRADIOL [Concomitant]
     Dosage: 1 D/F, DAILY (1/D)
  4. SYMBYAX [Concomitant]
     Dosage: 1 D/F, EACH EVENING
  5. GABAPENTIN [Concomitant]
     Dosage: 1 D/F, DAILY (1/D)
  6. VITAMIN D [Concomitant]
     Dosage: 1 D/F, WEEKLY (1/W)
  7. NEXIUM [Concomitant]
     Dosage: 1 D/F, DAILY (1/D)

REACTIONS (5)
  - ASTHENIA [None]
  - DEHYDRATION [None]
  - NAUSEA [None]
  - PAIN IN EXTREMITY [None]
  - VOMITING [None]
